FAERS Safety Report 18184530 (Version 4)
Quarter: 2020Q3

REPORT INFORMATION
  Report Type: Report from Study
  Country: US (occurrence: US)
  Receive Date: 20200824
  Receipt Date: 20200921
  Transmission Date: 20201103
  Serious: Yes (Hospitalization, Other)
  Sender: FDA-Public Use
  Company Number: US-BRISTOL-MYERS SQUIBB COMPANY-BMS-2020-065168

PATIENT
  Age: 54 Year
  Sex: Male
  Weight: 69.5 kg

DRUGS (4)
  1. TACROLIMUS. [Concomitant]
     Active Substance: TACROLIMUS
     Indication: PRODUCT USED FOR UNKNOWN INDICATION
     Route: 065
  2. BELATACEPT [Suspect]
     Active Substance: BELATACEPT
     Dosage: 750 MILLIGRAM
     Route: 042
     Dates: start: 20200812, end: 20200812
  3. PREDNISONE. [Concomitant]
     Active Substance: PREDNISONE
     Indication: PRODUCT USED FOR UNKNOWN INDICATION
     Route: 065
  4. BELATACEPT [Suspect]
     Active Substance: BELATACEPT
     Indication: LUNG TRANSPLANT
     Dosage: 10 MG/KG STATUS POST BILATERAL LUNG TRANSPLANT 28 DAY (FREQUENCY : DAY 0, 14, 28, 56)
     Route: 042
     Dates: start: 20200717, end: 20200717

REACTIONS (3)
  - Headache [Unknown]
  - Deep vein thrombosis [Unknown]
  - Eye pain [Unknown]

NARRATIVE: CASE EVENT DATE: 20200811
